FAERS Safety Report 9405152 (Version 2)
Quarter: 2013Q3

REPORT INFORMATION
  Report Type: Spontaneous
  Country: US (occurrence: US)
  Receive Date: 20130717
  Receipt Date: 20130724
  Transmission Date: 20140515
  Serious: Yes (Hospitalization, Other)
  Sender: FDA-Public Use
  Company Number: US-PFIZER INC-2013209302

PATIENT
  Age: 62 Year
  Sex: Female

DRUGS (3)
  1. ENBREL [Suspect]
     Indication: RHEUMATOID ARTHRITIS
     Dosage: UNK UNK, QWK
  2. METHOTREXATE SODIUM [Suspect]
     Dosage: UNK
  3. REVIA [Suspect]
     Dosage: UNK

REACTIONS (5)
  - Gallbladder disorder [Recovered/Resolved]
  - Liver disorder [Unknown]
  - Drug effect incomplete [Unknown]
  - Malaise [Unknown]
  - Nasopharyngitis [Recovered/Resolved]
